FAERS Safety Report 8173693-3 (Version None)
Quarter: 2012Q1

REPORT INFORMATION
  Report Type: 
  Country: None (occurrence: None)
  Receive Date: 20120229
  Receipt Date: 20120220
  Transmission Date: 20120608
  Serious: Yes (Hospitalization)
  Sender: FDA-Public Use
  Company Number: US-ACTELION-A-NJ2012-59621

PATIENT

DRUGS (2)
  1. TRACLEER [Suspect]
     Indication: PULMONARY ARTERIAL HYPERTENSION
     Dosage: UNK
     Route: 048
     Dates: start: 20080509, end: 20120101
  2. TRACLEER [Suspect]
     Dosage: UNK
     Route: 048
     Dates: start: 20120101

REACTIONS (2)
  - BLADDER DISORDER [None]
  - MALAISE [None]
